FAERS Safety Report 8157609-1 (Version None)
Quarter: 2012Q1

REPORT INFORMATION
  Report Type: 
  Country: None (occurrence: None)
  Receive Date: 20120222
  Receipt Date: 20120130
  Transmission Date: 20120608
  Serious: No
  Sender: FDA-Public Use
  Company Number: US-ASTRAZENECA-2012SE06160

PATIENT
  Age: 76 Year
  Sex: Female

DRUGS (1)
  1. ATENOLOL [Suspect]
     Route: 065

REACTIONS (2)
  - CARDIAC FLUTTER [None]
  - PALPITATIONS [None]
